FAERS Safety Report 7086956-X (Version None)
Quarter: 2010Q4

REPORT INFORMATION
  Report Type: 
  Country: None (occurrence: None)
  Receive Date: 20101106
  Receipt Date: 20100907
  Transmission Date: 20110411
  Serious: No
  Sender: FDA-Public Use
  Company Number: US-WYE-H16892110

PATIENT
  Age: 29 Year
  Sex: Female

DRUGS (4)
  1. PREMARIN [Suspect]
     Indication: ARTIFICIAL MENOPAUSE
     Route: 048
     Dates: start: 20100224, end: 20100812
  2. ELMIRON [Concomitant]
  3. PHENTERMINE [Concomitant]
  4. ASACOL [Concomitant]

REACTIONS (1)
  - DRUG INEFFECTIVE [None]
